FAERS Safety Report 4611059-0 (Version None)
Quarter: 2005Q2

REPORT INFORMATION
  Report Type: 
  Country: None (occurrence: None)
  Receive Date: 20050314
  Receipt Date: 20050105
  Transmission Date: 20051028
  Serious: Yes (Death)
  Sender: FDA-Public Use
  Company Number: USA050187535

PATIENT
  Age: 62 Year
  Sex: Female

DRUGS (3)
  1. ALIMTA [Suspect]
     Indication: BRONCHIAL CARCINOMA
  2. GEMZAR [Suspect]
     Indication: BRONCHIAL CARCINOMA
  3. CARBOPLATIN [Concomitant]

REACTIONS (2)
  - PULMONARY FIBROSIS [None]
  - RASH [None]
